FAERS Safety Report 7557201-3 (Version None)
Quarter: 2011Q2

REPORT INFORMATION
  Report Type: 
  Country: None (occurrence: None)
  Receive Date: 20110620
  Receipt Date: 20100512
  Transmission Date: 20111010
  Serious: No
  Sender: FDA-Public Use
  Company Number: US-MYLANLABS-2010S1008537

PATIENT
  Age: 72 Year
  Sex: Female
  Weight: 87.09 kg

DRUGS (6)
  1. TRAZODONE HCL [Concomitant]
     Dates: start: 20060101
  2. THYROID TAB [Concomitant]
  3. SINGULAIR [Concomitant]
     Dates: start: 20091201
  4. PERFOROMIST [Suspect]
     Indication: CHRONIC OBSTRUCTIVE PULMONARY DISEASE
     Route: 055
     Dates: start: 20100502
  5. BUDESONIDE [Concomitant]
  6. LISINOPRIL [Concomitant]

REACTIONS (3)
  - OEDEMA PERIPHERAL [None]
  - JOINT SWELLING [None]
  - WEIGHT INCREASED [None]
